FAERS Safety Report 14416907 (Version 1)
Quarter: 2018Q1

REPORT INFORMATION
  Report Type: Spontaneous
  Country: US (occurrence: US)
  Receive Date: 20180119
  Receipt Date: 20180119
  Transmission Date: 20180509
  Serious: Yes (Hospitalization)
  Sender: FDA-Public Use
  Company Number: None

PATIENT
  Age: 68 Year
  Sex: Male

DRUGS (14)
  1. FENOFIBRATE. [Concomitant]
     Active Substance: FENOFIBRATE
  2. GLIPIZIDE. [Concomitant]
     Active Substance: GLIPIZIDE
  3. TAMSULOSIN [Concomitant]
     Active Substance: TAMSULOSIN
  4. WARFARIN [Concomitant]
     Active Substance: WARFARIN
  5. CARVEDILOL. [Concomitant]
     Active Substance: CARVEDILOL
  6. ASPIRIN. [Concomitant]
     Active Substance: ASPIRIN
  7. NIACIN. [Concomitant]
     Active Substance: NIACIN
  8. SIMVASTATIN. [Concomitant]
     Active Substance: SIMVASTATIN
  9. VITAMIN C [Concomitant]
     Active Substance: ASCORBIC ACID
  10. PIOGLITAZONE. [Suspect]
     Active Substance: PIOGLITAZONE
     Indication: HYPERGLYCAEMIA
     Route: 048
     Dates: end: 20171014
  11. HYDRALAZINE [Concomitant]
     Active Substance: HYDRALAZINE HYDROCHLORIDE
  12. FERROUS SULFATE. [Concomitant]
     Active Substance: FERROUS SULFATE
  13. VITAMIN E [Concomitant]
     Active Substance: .ALPHA.-TOCOPHEROL
  14. FUROSEMIDE. [Concomitant]
     Active Substance: FUROSEMIDE

REACTIONS (3)
  - Asthenia [None]
  - Fluid overload [None]
  - Cardiac failure [None]

NARRATIVE: CASE EVENT DATE: 20171014
